FAERS Safety Report 18660613 (Version 1)
Quarter: 2020Q4

REPORT INFORMATION
  Report Type: Report from Study
  Country: US (occurrence: US)
  Receive Date: 20201223
  Receipt Date: 20201223
  Transmission Date: 20210114
  Serious: Yes (Hospitalization, Disabling)
  Sender: FDA-Public Use
  Company Number: US-EMD SERONO-9179482

PATIENT
  Sex: Female

DRUGS (1)
  1. REBIF [Suspect]
     Active Substance: INTERFERON BETA-1A
     Indication: MULTIPLE SCLEROSIS
     Route: 058
     Dates: start: 20060609

REACTIONS (5)
  - Bedridden [Unknown]
  - Cognitive disorder [Unknown]
  - Spinal fusion surgery [Unknown]
  - Mental disorder [Unknown]
  - Suicidal ideation [Unknown]
